FAERS Safety Report 10610424 (Version 2)
Quarter: 2015Q2

REPORT INFORMATION
  Report Type: Spontaneous
  Country: SE (occurrence: SE)
  Receive Date: 20141126
  Receipt Date: 20150421
  Transmission Date: 20150821
  Serious: Yes (Hospitalization)
  Sender: FDA-Public Use
  Company Number: SE-009507513-1411SWE010794

PATIENT
  Age: 31 Year
  Sex: Female

DRUGS (1)
  1. MIRTAZAPINE. [Suspect]
     Active Substance: MIRTAZAPINE
     Route: 048

REACTIONS (7)
  - Palpitations [Recovered/Resolved]
  - Suicide attempt [Recovered/Resolved]
  - Nausea [Recovered/Resolved]
  - Vomiting [Recovered/Resolved]
  - Dizziness [Recovered/Resolved]
  - Toxicity to various agents [Recovered/Resolved]
  - Chest discomfort [Recovered/Resolved]
